FAERS Safety Report 9616616 (Version 2)
Quarter: 2013Q4

REPORT INFORMATION
  Report Type: Spontaneous
  Country: US (occurrence: US)
  Receive Date: 20131011
  Receipt Date: 20131221
  Transmission Date: 20140711
  Serious: No
  Sender: FDA-Public Use
  Company Number: US-009507513-1310USA004895

PATIENT
  Age: 57 Year
  Sex: Female
  Weight: 45.35 kg

DRUGS (6)
  1. MIRALAX [Suspect]
     Indication: CONSTIPATION
     Dosage: 17 G, ONCE
     Route: 048
     Dates: start: 20131001
  2. MIRALAX [Suspect]
     Indication: IRRITABLE BOWEL SYNDROME
  3. TOPAMAX [Concomitant]
     Indication: CONVULSION
     Dosage: UNK, UNKNOWN
  4. SYNTHROID [Concomitant]
     Indication: THYROID DISORDER
     Dosage: UNK, UNKNOWN
  5. CYMBALTA [Concomitant]
     Indication: PAIN
     Dosage: UNK, UNKNOWN
  6. CENESTIN [Concomitant]
     Indication: HORMONE REPLACEMENT THERAPY
     Dosage: UNK, UNKNOWN

REACTIONS (4)
  - Feeling abnormal [Recovered/Resolved]
  - Abdominal distension [Recovered/Resolved]
  - Abdominal pain [Recovered/Resolved]
  - Flatulence [Recovered/Resolved]
